FAERS Safety Report 8890602 (Version 1)
Quarter: 2012Q4

REPORT INFORMATION
  Report Type: 
  Country: TR (occurrence: TR)
  Receive Date: 20121106
  Receipt Date: 20121106
  Transmission Date: 20130627
  Serious: Yes (Hospitalization)
  Sender: FDA-Public Use
  Company Number: TR-WATSON-2012-18814

PATIENT
  Age: 23 Year
  Sex: Male

DRUGS (3)
  1. QUETIAPINE [Suspect]
     Indication: SCHIZOAFFECTIVE DISORDER
     Dosage: 150 mg, daily
     Route: 065
  2. CHLORPROMAZINE HYDROCHLORIDE [Suspect]
     Indication: SCHIZOAFFECTIVE DISORDER
     Dosage: 100 mg, daily
     Route: 065
  3. CLOZAPINE [Suspect]
     Indication: SCHIZOAFFECTIVE DISORDER
     Dosage: 125 mg, daily
     Route: 065

REACTIONS (5)
  - Neuroleptic malignant syndrome [Recovered/Resolved]
  - Urinary incontinence [None]
  - Hypophagia [None]
  - Incorrect dose administered [None]
  - Accidental overdose [None]
